FAERS Safety Report 7883241-0 (Version None)
Quarter: 2011Q4

REPORT INFORMATION
  Report Type: 
  Country: None (occurrence: None)
  Receive Date: 20111102
  Receipt Date: 20111027
  Transmission Date: 20120403
  Serious: Yes (Death)
  Sender: FDA-Public Use
  Company Number: RU-SHIRE-ALL1-2011-04162

PATIENT
  Sex: Male
  Weight: 26 kg

DRUGS (2)
  1. ELAPRASE [Suspect]
     Indication: MUCOPOLYSACCHARIDOSIS II
     Dosage: 13 MG, 1X/WEEK
     Route: 041
     Dates: start: 20110412, end: 20111026
  2. STEROID [Concomitant]
     Indication: PREMEDICATION
     Dosage: UNK, UNKNOWN
     Route: 065
     Dates: start: 20110101

REACTIONS (5)
  - COUGH [None]
  - DYSPNOEA [None]
  - ASPIRATION [None]
  - RASH [None]
  - DRUG HYPERSENSITIVITY [None]
